FAERS Safety Report 7131921-7 (Version None)
Quarter: 2010Q4

REPORT INFORMATION
  Report Type: 
  Country: None (occurrence: None)
  Receive Date: 20101202
  Receipt Date: 20101130
  Transmission Date: 20110411
  Serious: Yes (Death)
  Sender: FDA-Public Use
  Company Number: UA-TEVA-XM22-04-254332GER

PATIENT
  Sex: Male
  Weight: 80 kg

DRUGS (49)
  1. XM22 PEG-FILGRASTIM [Suspect]
     Indication: COLONY STIMULATING FACTOR PROPHYLAXIS
     Dosage: BLINDED XM22 6 MG OR PLACEBO
     Route: 058
     Dates: start: 20100726, end: 20100726
  2. XM22 PEG-FILGRASTIM [Suspect]
     Dosage: BLINDED XM22 6 MG OR PLACEBO
     Route: 058
     Dates: start: 20100821, end: 20100821
  3. XM22 PEG-FILGRASTIM [Suspect]
     Dosage: BLINDED XM22 6 MG OR PLACEBO
     Route: 058
     Dates: start: 20100911, end: 20100911
  4. XM22 PEG-FILGRASTIM [Suspect]
     Dosage: BLINDED XM22 6 MG OR PLACEBO
     Route: 058
     Dates: start: 20101014, end: 20101014
  5. CISPLATIN [Suspect]
     Indication: NON-SMALL CELL LUNG CANCER
     Route: 041
     Dates: start: 20100723, end: 20100723
  6. CISPLATIN [Suspect]
     Route: 041
     Dates: start: 20100818, end: 20100818
  7. CISPLATIN [Suspect]
     Route: 041
     Dates: start: 20100908, end: 20100908
  8. CISPLATIN [Suspect]
     Route: 041
     Dates: start: 20101011, end: 20101011
  9. ETOPOSIDE [Suspect]
     Indication: NON-SMALL CELL LUNG CANCER
     Route: 041
     Dates: start: 20100723, end: 20100725
  10. ETOPOSIDE [Suspect]
     Route: 041
     Dates: start: 20100818, end: 20100820
  11. ETOPOSIDE [Suspect]
     Route: 041
     Dates: start: 20100908, end: 20100910
  12. ETOPOSIDE [Suspect]
     Route: 041
     Dates: start: 20101011, end: 20101013
  13. ONDANSETRON [Concomitant]
     Indication: PREMEDICATION
     Route: 042
     Dates: start: 20100723, end: 20100725
  14. ONDANSETRON [Concomitant]
     Indication: VOMITING
     Route: 042
     Dates: start: 20100818, end: 20100820
  15. ONDANSETRON [Concomitant]
     Route: 042
     Dates: start: 20100908, end: 20100911
  16. ONDANSETRON [Concomitant]
     Route: 042
     Dates: start: 20101011, end: 20101013
  17. ONDANSETRON [Concomitant]
     Route: 042
     Dates: start: 20101021, end: 20101021
  18. DIPHENHYDRAMINE HCL [Concomitant]
     Indication: PREMEDICATION
     Route: 042
     Dates: start: 20100723, end: 20100725
  19. DIPHENHYDRAMINE HCL [Concomitant]
     Indication: PULMONARY OEDEMA
     Route: 042
     Dates: start: 20100818, end: 20100820
  20. DIPHENHYDRAMINE HCL [Concomitant]
     Route: 042
     Dates: start: 20100908, end: 20100910
  21. DIPHENHYDRAMINE HCL [Concomitant]
     Route: 042
     Dates: start: 20101011, end: 20101013
  22. DIPHENHYDRAMINE HCL [Concomitant]
     Route: 042
     Dates: start: 20101022, end: 20101022
  23. DEXAMETHASONE [Concomitant]
     Indication: PREMEDICATION
     Route: 042
     Dates: start: 20100723, end: 20100725
  24. DEXAMETHASONE [Concomitant]
     Indication: PULMONARY OEDEMA
     Route: 042
     Dates: start: 20100813, end: 20100815
  25. DEXAMETHASONE [Concomitant]
     Route: 042
     Dates: start: 20100818, end: 20100820
  26. DEXAMETHASONE [Concomitant]
     Route: 042
     Dates: start: 20100908, end: 20100910
  27. DEXAMETHASONE [Concomitant]
     Route: 042
     Dates: start: 20101011, end: 20101013
  28. DEXAMETHASONE [Concomitant]
     Route: 042
     Dates: start: 20101022, end: 20101023
  29. SODIUM CHLORIDE [Concomitant]
     Route: 042
     Dates: start: 20100813, end: 20100815
  30. ASCORBIC ACID [Concomitant]
     Route: 042
     Dates: start: 20100813, end: 20100815
  31. TOT'HEMA [Concomitant]
     Indication: ANAEMIA
     Route: 048
     Dates: start: 20100828, end: 20101021
  32. AMINOCAPROIC ACID [Concomitant]
     Indication: PULMONARY OEDEMA
     Route: 042
     Dates: start: 20101021, end: 20101021
  33. RED BLOOD CELLS [Concomitant]
     Indication: ANAEMIA
     Route: 042
     Dates: start: 20101021, end: 20101021
  34. ETAMSILATE [Concomitant]
     Indication: PULMONARY OEDEMA
     Dates: start: 20101021, end: 20101021
  35. METAMIZOLE SODIUM [Concomitant]
     Indication: PULMONARY OEDEMA
     Route: 030
     Dates: start: 20101021, end: 20101021
  36. METAMIZOLE SODIUM [Concomitant]
     Route: 042
     Dates: start: 20101022, end: 20101022
  37. DIPHENHYDRAMINE HCL [Concomitant]
     Route: 030
     Dates: start: 20101021, end: 20101021
  38. PLASMA [Concomitant]
     Indication: ANAEMIA
     Route: 042
     Dates: start: 20101021, end: 20101021
  39. PLASMA [Concomitant]
     Route: 042
     Dates: start: 20101022, end: 20101022
  40. AMINOPHYLLINE [Concomitant]
     Indication: PULMONARY OEDEMA
     Route: 042
     Dates: start: 20101022, end: 20101023
  41. PRIMAXIN [Concomitant]
     Indication: FEBRILE NEUTROPENIA
     Route: 042
     Dates: start: 20101022, end: 20101023
  42. PREDNISOLONE [Concomitant]
     Indication: PULMONARY OEDEMA
     Route: 030
     Dates: start: 20101022
  43. NIKETHAMIDE [Concomitant]
     Indication: PULMONARY OEDEMA
     Route: 030
     Dates: start: 20101022
  44. L-LYSINE AESCINATE [Concomitant]
     Indication: PULMONARY OEDEMA
     Route: 042
     Dates: start: 20101022, end: 20101023
  45. CORGLYCON (CONVALLARIA MAJALIS EXTRACT) [Concomitant]
     Indication: PULMONARY OEDEMA
     Route: 042
     Dates: start: 20101022, end: 20101023
  46. FUROSEMIDE [Concomitant]
     Indication: PULMONARY OEDEMA
     Route: 042
     Dates: start: 20101022, end: 20101023
  47. COCARBOXYLASE [Concomitant]
     Indication: PULMONARY OEDEMA
     Route: 030
     Dates: start: 20101022, end: 20101022
  48. DOPAMINE [Concomitant]
     Indication: PULMONARY OEDEMA
     Route: 042
     Dates: start: 20101022, end: 20101023
  49. INOSINE [Concomitant]
     Indication: PULMONARY OEDEMA
     Route: 042
     Dates: start: 20101022, end: 20101022

REACTIONS (4)
  - CARDIOVASCULAR INSUFFICIENCY [None]
  - MALIGNANT NEOPLASM PROGRESSION [None]
  - NON-SMALL CELL LUNG CANCER METASTATIC [None]
  - PULMONARY OEDEMA [None]
